FAERS Safety Report 4969749-6 (Version None)
Quarter: 2006Q2

REPORT INFORMATION
  Report Type: 
  Country: None (occurrence: None)
  Receive Date: 20060411
  Receipt Date: 20050117
  Transmission Date: 20061013
  Serious: Yes (Hospitalization)
  Sender: FDA-Public Use
  Company Number: US-MERCK-0501USA03053

PATIENT
  Age: 84 Year
  Sex: Male

DRUGS (1)
  1. VIOXX [Suspect]
     Indication: OSTEOARTHRITIS
     Route: 048
     Dates: start: 20000103, end: 20010501

REACTIONS (11)
  - ACUTE MYOCARDIAL INFARCTION [None]
  - ANGINA UNSTABLE [None]
  - AZOTAEMIA [None]
  - BRADYCARDIA [None]
  - MYOCARDIAL INFARCTION [None]
  - MYOCARDIAL ISCHAEMIA [None]
  - NASOPHARYNGITIS [None]
  - OSTEOARTHRITIS [None]
  - PROTEINURIA [None]
  - PULMONARY VASCULAR DISORDER [None]
  - SICK SINUS SYNDROME [None]
